FAERS Safety Report 9922562 (Version 1)
Quarter: 2014Q1

REPORT INFORMATION
  Report Type: Spontaneous
  Country: US (occurrence: US)
  Receive Date: 20140225
  Receipt Date: 20140225
  Transmission Date: 20141002
  Serious: No
  Sender: FDA-Public Use
  Company Number: US-ABBVIE-13P-163-1050498-00

PATIENT
  Sex: Male

DRUGS (1)
  1. ANDROGEL 1% [Suspect]
     Indication: BLOOD TESTOSTERONE DECREASED
     Dosage: 1 (5GRM) PACKET DAILY

REACTIONS (1)
  - Dry skin [Recovering/Resolving]
